FAERS Safety Report 8326282-1 (Version None)
Quarter: 2012Q2

REPORT INFORMATION
  Report Type: 
  Country: None (occurrence: None)
  Receive Date: 20120501
  Receipt Date: 20120418
  Transmission Date: 20120825
  Serious: Yes (Death)
  Sender: FDA-Public Use
  Company Number: US-MYLANLABS-2009S1018066

PATIENT
  Age: 36 Year
  Sex: Male
  Weight: 136.08 kg

DRUGS (15)
  1. FENTANYL-100 [Suspect]
     Indication: MUSCULOSKELETAL CHEST PAIN
     Route: 062
     Dates: start: 20070502, end: 20070907
  2. CLONAZEPAM [Concomitant]
  3. SPIRIVA [Concomitant]
  4. IBUPROFEN [Concomitant]
  5. ABILIFY [Concomitant]
  6. BENZTROPINE MESYLATE [Concomitant]
  7. CELEXA [Concomitant]
  8. PROMETHAZINE - CODEINE /01129901/ [Concomitant]
     Dosage: SYRUP
  9. TRIAMTERENE AND HYDROCHLOROTHIAZIDE [Concomitant]
     Dosage: 37.5MG/25MG
  10. HALOPERIDOL [Concomitant]
  11. Q-TUSSIN [Concomitant]
  12. HYDROCODONE BITARTRATE [Suspect]
     Indication: MUSCULOSKELETAL CHEST PAIN
     Dosage: EVERY 4-6 HOURS
  13. ZOLPIDEM TARTRATE [Concomitant]
  14. AMITRIPTYLINE HCL [Concomitant]
  15. CHANTIX [Concomitant]

REACTIONS (5)
  - CARDIOMEGALY [None]
  - PULMONARY CONGESTION [None]
  - TOXICITY TO VARIOUS AGENTS [None]
  - VENTRICULAR HYPERTROPHY [None]
  - HEPATOMEGALY [None]
